FAERS Safety Report 23183870 (Version 1)
Quarter: 2023Q4

REPORT INFORMATION
  Report Type: Spontaneous
  Country: US (occurrence: US)
  Receive Date: 20231114
  Receipt Date: 20231114
  Transmission Date: 20240110
  Serious: No
  Sender: FDA-Public Use
  Company Number: US-ARIS GLOBAL-38233

PATIENT
  Age: 21 Year
  Sex: Male

DRUGS (11)
  1. PHOTREXA VISCOUS [Suspect]
     Active Substance: RIBOFLAVIN 5^-PHOSPHATE SODIUM
     Indication: Keratoconus
     Dosage: EVERY 2 MINUTES FOR 30 MINUTES
     Route: 047
     Dates: start: 20201215, end: 20201215
  2. PHOTREXA VISCOUS [Suspect]
     Active Substance: RIBOFLAVIN 5^-PHOSPHATE SODIUM
     Indication: Keratoconus
     Dosage: INSTILLED EVERY 2 MINUTES FOR 30 MINUTES WITH KXL SYSTEM
     Route: 047
     Dates: start: 20201215, end: 20201215
  3. TYLENOL [Concomitant]
     Active Substance: ACETAMINOPHEN
     Indication: Product used for unknown indication
  4. OFLOXACIN [Concomitant]
     Active Substance: OFLOXACIN
     Indication: Antibiotic prophylaxis
     Route: 061
  5. PHOTREXA [Suspect]
     Active Substance: RIBOFLAVIN 5^-PHOSPHATE SODIUM
     Indication: Keratoconus
     Route: 047
     Dates: start: 20201215, end: 20201215
  6. NARATRIPTAN [Concomitant]
     Active Substance: NARATRIPTAN HYDROCHLORIDE
     Indication: Product used for unknown indication
  7. DEVICE [Suspect]
     Active Substance: DEVICE
  8. PROPARACAINE [Concomitant]
     Active Substance: PROPARACAINE
     Indication: Anaesthetic premedication
     Dosage: 3 TIMES EVERY 5 MINUTES
     Route: 061
  9. ALCOHOL [Concomitant]
     Active Substance: ALCOHOL
     Indication: Product used for unknown indication
     Dosage: DILUTE ALCOHOL FOR 30 SECONDS
  10. Balanced salt solution (BSS) [Concomitant]
     Indication: Product used for unknown indication
  11. IBUPROFEN [Concomitant]
     Active Substance: IBUPROFEN
     Indication: Product used for unknown indication

REACTIONS (2)
  - Procedural anxiety [Recovered/Resolved]
  - Eye pain [Recovered/Resolved]

NARRATIVE: CASE EVENT DATE: 20201215
